FAERS Safety Report 9284194 (Version 1)
Quarter: 2013Q2

REPORT INFORMATION
  Report Type: Spontaneous
  Country: IT (occurrence: None)
  Receive Date: 20130502
  Receipt Date: 20130502
  Transmission Date: 20140414
  Serious: Yes (Hospitalization)
  Sender: FDA-Public Use
  Company Number: INT_00252_2013

PATIENT
  Age: 62 Year
  Sex: Female

DRUGS (2)
  1. CEFTRIAXON [Suspect]
     Indication: BRONCHITIS
     Dosage: (1 DF QD INTRAMUSCULAR)?
     Route: 030
     Dates: end: 20130123
  2. NANSEN [Concomitant]

REACTIONS (1)
  - Bronchitis [None]
